FAERS Safety Report 7376394-4 (Version None)
Quarter: 2011Q1

REPORT INFORMATION
  Report Type: 
  Country: None (occurrence: None)
  Receive Date: 20110317
  Receipt Date: 20110302
  Transmission Date: 20110831
  Serious: Yes (Other)
  Sender: FDA-Public Use
  Company Number: MPS1-1000446

PATIENT
  Age: 17 Year
  Sex: Female

DRUGS (1)
  1. ALDURAZYME [Suspect]
     Indication: MUCOPOLYSACCHARIDOSIS I
     Dosage: , INTRAVENOUS
     Route: 042

REACTIONS (11)
  - SPINAL COLUMN STENOSIS [None]
  - CORNEAL DEFECT [None]
  - SPINAL CORD COMPRESSION [None]
  - LUNG DISORDER [None]
  - MYELOPATHY [None]
  - DIAPHRAGM MUSCLE WEAKNESS [None]
  - CORNEAL TRANSPLANT [None]
  - DYSPNOEA [None]
  - BLINDNESS [None]
  - EXERCISE TOLERANCE DECREASED [None]
  - BONE PAIN [None]
